FAERS Safety Report 5171434-5 (Version None)
Quarter: 2006Q4

REPORT INFORMATION
  Report Type: 
  Country: None (occurrence: None)
  Receive Date: 20061213
  Receipt Date: 20060831
  Transmission Date: 20070319
  Serious: Yes (Other)
  Sender: FDA-Public Use
  Company Number: BR-AVENTIS-200619483GDDC

PATIENT
  Age: 47 Year
  Sex: Female
  Weight: 69 kg

DRUGS (22)
  1. FLAGYL [Suspect]
     Indication: GINGIVAL DISORDER
     Route: 048
     Dates: start: 20060830, end: 20060101
  2. BESEROL                            /01550501/ [Suspect]
     Indication: INTERVERTEBRAL DISC PROTRUSION
  3. BESEROL                            /01550501/ [Suspect]
  4. ACETAMINOPHEN [Suspect]
     Indication: INTERVERTEBRAL DISC PROTRUSION
     Dates: start: 20060715
  5. CORTICOSTEROIDS [Suspect]
     Dosage: DOSE: 3 APPLICATIONS DIRECTLY TO THE COLUMN
  6. FENOFIBRATE [Suspect]
     Indication: BLOOD CHOLESTEROL
     Route: 048
     Dates: start: 20060501, end: 20060713
  7. FENOFIBRATE [Suspect]
     Indication: BLOOD TRIGLYCERIDES
     Route: 048
     Dates: start: 20060501, end: 20060713
  8. TENOXICAM [Suspect]
     Indication: FIBROMYALGIA
     Route: 048
     Dates: start: 20060401, end: 20060713
  9. FAMOTIDINE [Suspect]
     Indication: FIBROMYALGIA
     Route: 048
     Dates: start: 20060401, end: 20060713
  10. IMIPRAMINE [Suspect]
     Indication: FIBROMYALGIA
     Route: 048
     Dates: start: 20060401, end: 20060713
  11. ALPRAZOLAM [Suspect]
     Indication: FIBROMYALGIA
     Route: 048
     Dates: start: 20060401, end: 20060713
  12. DIETHYLPROPION HCL [Suspect]
     Indication: WEIGHT CONTROL
     Route: 048
     Dates: start: 20051201, end: 20060713
  13. SPIRONOLACTONE [Suspect]
     Indication: WEIGHT CONTROL
     Route: 048
     Dates: start: 20051201, end: 20060713
  14. FLUOXETINE [Suspect]
     Indication: WEIGHT CONTROL
     Route: 048
     Dates: start: 20051201, end: 20060713
  15. ASIATICOSIDE [Suspect]
     Indication: WEIGHT CONTROL
     Route: 048
     Dates: start: 20051201, end: 20060713
  16. TRYPTOPHAN [Suspect]
     Indication: WEIGHT CONTROL
     Route: 048
     Dates: start: 20051201, end: 20060713
  17. FUCUS [Suspect]
     Indication: WEIGHT CONTROL
     Route: 048
     Dates: start: 20051201, end: 20060713
  18. HERBAL PREPARATION [Suspect]
     Indication: WEIGHT CONTROL
     Route: 048
     Dates: start: 20051201, end: 20060713
  19. PASSIFLORA [Suspect]
     Indication: WEIGHT CONTROL
     Route: 048
     Dates: start: 20051201, end: 20060713
  20. CHLORDIAZEPOXIDE [Suspect]
     Indication: WEIGHT CONTROL
     Route: 048
     Dates: start: 20051201, end: 20060713
  21. GINKGO [Suspect]
     Indication: WEIGHT CONTROL
     Route: 048
     Dates: start: 20051201, end: 20060713
  22. SIBUTRAMINE [Suspect]
     Indication: WEIGHT CONTROL
     Route: 048
     Dates: start: 20051201, end: 20060713

REACTIONS (5)
  - ABDOMINAL PAIN [None]
  - ABORTION SPONTANEOUS [None]
  - DRUG EXPOSURE DURING PREGNANCY [None]
  - HEADACHE [None]
  - VAGINAL HAEMORRHAGE [None]
